FAERS Safety Report 11626659 (Version 2)
Quarter: 2016Q1

REPORT INFORMATION
  Report Type: Spontaneous
  Country: US (occurrence: US)
  Receive Date: 20151013
  Receipt Date: 20160111
  Transmission Date: 20160525
  Serious: Yes (Hospitalization)
  Sender: FDA-Public Use
  Company Number: US-BAYER-2015-442302

PATIENT
  Age: 25 Year
  Sex: Female
  Weight: 81.63 kg

DRUGS (2)
  1. MICRONOR [Concomitant]
     Active Substance: NORETHINDRONE
  2. MIRENA [Suspect]
     Active Substance: LEVONORGESTREL
     Dosage: 20 MCG/24HR, CONT
     Route: 015
     Dates: start: 20110110, end: 20121106

REACTIONS (10)
  - Stress [None]
  - Pain [None]
  - Abdominal pain lower [None]
  - Device issue [None]
  - Injury [None]
  - Anxiety [None]
  - Emotional distress [None]
  - Device failure [None]
  - Device dislocation [None]
  - Menstruation irregular [None]

NARRATIVE: CASE EVENT DATE: 20121106
